FAERS Safety Report 15041424 (Version 1)
Quarter: 2018Q2

REPORT INFORMATION
  Report Type: Spontaneous
  Country: US (occurrence: US)
  Receive Date: 20180621
  Receipt Date: 20180621
  Transmission Date: 20180711
  Serious: Yes (Hospitalization, Other)
  Sender: FDA-Public Use
  Company Number: US-B.I. PHARMACEUTICALS,INC./RIDGEFIELD-2018-BI-031246

PATIENT
  Age: 67 Year
  Sex: Female

DRUGS (1)
  1. GILOTRIF [Suspect]
     Active Substance: AFATINIB
     Indication: NON-SMALL CELL LUNG CANCER METASTATIC
     Dosage: ONE TABLET DAILY;  FORM STRENGTH: 30 MG; ?ACTION(S) TAKEN WITH PRODUCT: DOSE NOT CHANGED
     Route: 048
     Dates: start: 20180402

REACTIONS (10)
  - Nausea [Unknown]
  - Escherichia urinary tract infection [Unknown]
  - Nephrolithiasis [Recovered/Resolved]
  - Diarrhoea [Unknown]
  - Sepsis [Recovered/Resolved]
  - Incontinence [Unknown]
  - Epistaxis [Unknown]
  - Dizziness [Unknown]
  - Chromaturia [Unknown]
  - Nasal crusting [Unknown]

NARRATIVE: CASE EVENT DATE: 201804
